FAERS Safety Report 18600807 (Version 2)
Quarter: 2020Q4

REPORT INFORMATION
  Report Type: Spontaneous
  Country: CN (occurrence: CN)
  Receive Date: 20201210
  Receipt Date: 20201222
  Transmission Date: 20210114
  Serious: Yes (Other)
  Sender: FDA-Public Use
  Company Number: CN-PFIZER INC-2020481913

PATIENT
  Age: 62 Year
  Sex: Female
  Weight: 45 kg

DRUGS (1)
  1. DIFLUCAN [Suspect]
     Active Substance: FLUCONAZOLE
     Indication: ANTI-INFECTIVE THERAPY
     Dosage: 400 MG, 2X/DAY
     Route: 042
     Dates: start: 20201031, end: 20201102

REACTIONS (7)
  - Blood pressure increased [Unknown]
  - Chills [Recovering/Resolving]
  - Off label use [Unknown]
  - Hyperpyrexia [Recovering/Resolving]
  - Discomfort [Unknown]
  - Tachypnoea [Recovering/Resolving]
  - Chest discomfort [Recovering/Resolving]

NARRATIVE: CASE EVENT DATE: 20201031
